FAERS Safety Report 7218922-5 (Version None)
Quarter: 2011Q1

REPORT INFORMATION
  Report Type: 
  Country: None (occurrence: None)
  Receive Date: 20110110
  Receipt Date: 20101227
  Transmission Date: 20110831
  Serious: Yes (Other)
  Sender: FDA-Public Use
  Company Number: CA-RANBAXY-2010US-40765

PATIENT
  Sex: Female

DRUGS (4)
  1. INSULIN [Concomitant]
     Indication: DIABETES MELLITUS
     Dosage: UNK
     Route: 065
  2. GLYBURIDE [Concomitant]
     Indication: DIABETES MELLITUS
     Dosage: UNK
     Route: 065
  3. GLICLAZIDE [Concomitant]
     Indication: DIABETES MELLITUS
     Dosage: UNK
     Route: 065
  4. METFORMIN [Suspect]
     Indication: TYPE 2 DIABETES MELLITUS
     Dosage: UNK, UNK
     Route: 065

REACTIONS (3)
  - AMINO ACID LEVEL INCREASED [None]
  - BLOOD HOMOCYSTEINE INCREASED [None]
  - NEUROPATHY PERIPHERAL [None]
